FAERS Safety Report 5870466-9 (Version None)
Quarter: 2008Q3

REPORT INFORMATION
  Report Type: 
  Country: None (occurrence: None)
  Receive Date: 20080904
  Receipt Date: 20071017
  Transmission Date: 20090109
  Serious: Yes (Hospitalization)
  Sender: FDA-Public Use
  Company Number: US-BRISTOL-MYERS SQUIBB COMPANY-13946207

PATIENT
  Age: 5 Decade
  Sex: Female

DRUGS (1)
  1. DEFINITY [Suspect]
     Dosage: 3CC OF 1.3CC DEFINITY DILUTED IN 8.7CC STERILE SALINE WITH NO PRESERVATIVE.
     Route: 042
     Dates: start: 20071009, end: 20071009

REACTIONS (2)
  - RESPIRATORY DISTRESS [None]
  - URTICARIA [None]
